FAERS Safety Report 5392583-2 (Version None)
Quarter: 2007Q3

REPORT INFORMATION
  Report Type: 
  Country: None (occurrence: None)
  Receive Date: 20070720
  Receipt Date: 20070712
  Transmission Date: 20080115
  Serious: Yes (Hospitalization)
  Sender: FDA-Public Use
  Company Number: SE-ABBOTT-07P-150-0370914-00

PATIENT
  Age: 47 Year
  Sex: Female

DRUGS (4)
  1. REDUCTIL [Suspect]
     Indication: DRUG USE FOR UNKNOWN INDICATION
     Route: 048
     Dates: end: 20070529
  2. BUPROPION HYDROCHLORIDE [Suspect]
     Indication: PROPHYLAXIS
     Route: 048
     Dates: end: 20070529
  3. NAPROXEN [Concomitant]
     Indication: DRUG USE FOR UNKNOWN INDICATION
     Route: 048
  4. ARTHROTEC [Concomitant]
     Indication: DRUG USE FOR UNKNOWN INDICATION
     Route: 048

REACTIONS (1)
  - PSYCHOTIC DISORDER [None]
